APPROVED DRUG PRODUCT: BEXAROTENE
Active Ingredient: BEXAROTENE
Strength: 75MG
Dosage Form/Route: CAPSULE;ORAL
Application: A209931 | Product #001 | TE Code: AB
Applicant: TEVA PHARMACEUTICALS USA
Approved: Jan 14, 2021 | RLD: No | RS: No | Type: RX